FAERS Safety Report 8250243-4 (Version None)
Quarter: 2012Q1

REPORT INFORMATION
  Report Type: 
  Country: None (occurrence: None)
  Receive Date: 20120328
  Receipt Date: 20120313
  Transmission Date: 20120608
  Serious: Yes (Other)
  Sender: FDA-Public Use
  Company Number: FK201200813

PATIENT
  Age: 78 Year
  Sex: Female

DRUGS (2)
  1. PREDNISOLONE [Concomitant]
  2. METHOTREXATE [Suspect]
     Indication: RHEUMATOID ARTHRITIS
     Dosage: 12.5 MG, 1 WK

REACTIONS (2)
  - BREAST CANCER [None]
  - KAPOSI'S SARCOMA [None]
